FAERS Safety Report 9222736 (Version 1)
Quarter: 2013Q2

REPORT INFORMATION
  Report Type: Spontaneous
  Country: IT (occurrence: IT)
  Receive Date: 20130410
  Receipt Date: 20130410
  Transmission Date: 20140414
  Serious: Yes (Hospitalization)
  Sender: FDA-Public Use
  Company Number: IT-PFIZER INC-2013112589

PATIENT
  Age: 33 Year
  Sex: Female

DRUGS (6)
  1. TAVOR [Suspect]
     Dosage: 6.25 MG, TOTAL DOSE
     Route: 048
     Dates: start: 20130119, end: 20130119
  2. ZOLOFT [Suspect]
     Dosage: 50 MG, TOTAL DOSE
     Route: 048
     Dates: start: 20130119, end: 20130119
  3. RISPERDAL [Suspect]
     Dosage: 6 MG, TOTAL DOSE
     Route: 048
     Dates: start: 20130119, end: 20130119
  4. RISPERDAL [Suspect]
     Dosage: 4 MG, TOTAL DOSE
     Route: 048
     Dates: start: 20130119, end: 20130119
  5. LARGACTIL [Suspect]
     Dosage: 200 MG, TOTAL DOSE
     Route: 048
     Dates: start: 20130119, end: 20130119
  6. LAMICTAL [Suspect]
     Dosage: 400 MG, TOTAL DOSE
     Route: 048
     Dates: start: 20130119, end: 20130119

REACTIONS (3)
  - Drug abuse [Recovering/Resolving]
  - Intentional self-injury [Recovering/Resolving]
  - Sopor [Recovering/Resolving]
